FAERS Safety Report 23810206 (Version 1)
Quarter: 2024Q2

REPORT INFORMATION
  Report Type: Other
  Country: CA (occurrence: CA)
  Receive Date: 20240502
  Receipt Date: 20240502
  Transmission Date: 20240716
  Serious: Yes (Hospitalization, Other)
  Sender: FDA-Public Use
  Company Number: CA-APOTEX-2024AP005183

PATIENT
  Age: 66 Year
  Sex: Male

DRUGS (6)
  1. LENALIDOMIDE [Suspect]
     Active Substance: LENALIDOMIDE
     Indication: Product used for unknown indication
     Dosage: 10 MILLIGRAM
     Route: 065
  2. ELRANATAMAB [Suspect]
     Active Substance: ELRANATAMAB
     Indication: Product used for unknown indication
     Dosage: UNK
     Route: 065
  3. CUVITRU [Suspect]
     Active Substance: HUMAN IMMUNOGLOBULIN G
     Indication: Secondary immunodeficiency
     Dosage: 18 GRAM, Q.WK.
     Route: 058
  4. CUVITRU [Suspect]
     Active Substance: HUMAN IMMUNOGLOBULIN G
     Dosage: 11 GRAM, Q.WK.
     Route: 058
  5. CUVITRU [Suspect]
     Active Substance: HUMAN IMMUNOGLOBULIN G
     Dosage: 12 GRAM, Q.WK.
     Route: 058
  6. CUVITRU [Suspect]
     Active Substance: HUMAN IMMUNOGLOBULIN G
     Dosage: 14 GRAM, Q.WK.
     Route: 058

REACTIONS (6)
  - Blood immunoglobulin G abnormal [Unknown]
  - Blood immunoglobulin G increased [Unknown]
  - Plasma cell myeloma recurrent [Unknown]
  - Product dose omission issue [Unknown]
  - Oral infection [Unknown]
  - Drug ineffective [Unknown]
